FAERS Safety Report 10201918 (Version 2)
Quarter: 2014Q2

REPORT INFORMATION
  Report Type: Spontaneous
  Country: US (occurrence: None)
  Receive Date: 20140527
  Receipt Date: 20140626
  Transmission Date: 20141212
  Serious: Yes (Hospitalization)
  Sender: FDA-Public Use
  Company Number: 2014CT000059

PATIENT
  Age: 54 Year
  Sex: Female
  Weight: 65.77 kg

DRUGS (2)
  1. KORLYM [Suspect]
     Indication: CUSHING^S SYNDROME
     Route: 048
     Dates: start: 20140410, end: 20140506
  2. COUMADIN [Concomitant]

REACTIONS (8)
  - Loss of consciousness [None]
  - Sepsis [None]
  - Cellulitis [None]
  - Blood glucose decreased [None]
  - International normalised ratio increased [None]
  - Muscular weakness [None]
  - Dehydration [None]
  - Drug interaction [None]
